FAERS Safety Report 12746808 (Version 1)
Quarter: 2016Q3

REPORT INFORMATION
  Report Type: Spontaneous
  Country: SI (occurrence: SI)
  Receive Date: 20160915
  Receipt Date: 20160915
  Transmission Date: 20161109
  Serious: Yes (Hospitalization, Other)
  Sender: FDA-Public Use
  Company Number: SI-AMGEN-SVNSP2016123489

PATIENT
  Age: 68 Year
  Sex: Female

DRUGS (11)
  1. IMMUNOGLOBULIN [Concomitant]
     Active Substance: HUMAN IMMUNOGLOBULIN G
  2. PREDNISONE. [Concomitant]
     Active Substance: PREDNISONE
  3. NPLATE [Suspect]
     Active Substance: ROMIPLOSTIM
     Indication: THROMBOCYTOPENIA
     Dosage: UNK, UNK
     Route: 065
     Dates: start: 201112, end: 201311
  4. ELTROMBOPAG [Concomitant]
     Active Substance: ELTROMBOPAG
     Dosage: 25 MG, UNK
  5. VINBLASTINE [Concomitant]
     Active Substance: VINBLASTINE
  6. RITUXIMAB [Concomitant]
     Active Substance: RITUXIMAB
  7. VINCRISTINE [Concomitant]
     Active Substance: VINCRISTINE
  8. DANAZOL. [Concomitant]
     Active Substance: DANAZOL
  9. DEXAMETHASONE. [Concomitant]
     Active Substance: DEXAMETHASONE
  10. WARFARIN [Concomitant]
     Active Substance: WARFARIN
  11. AZATHIOPRINE. [Concomitant]
     Active Substance: AZATHIOPRINE

REACTIONS (5)
  - Haemorrhage [Unknown]
  - Drug effect decreased [Unknown]
  - Petechiae [Unknown]
  - Purpura [Unknown]
  - Haemoglobin decreased [Unknown]
